FAERS Safety Report 13119520 (Version 1)
Quarter: 2017Q1

REPORT INFORMATION
  Report Type: Spontaneous
  Country: FR (occurrence: FR)
  Receive Date: 20170116
  Receipt Date: 20170116
  Transmission Date: 20170428
  Serious: Yes (Hospitalization, Other)
  Sender: FDA-Public Use
  Company Number: FR-BRISTOL-MYERS SQUIBB COMPANY-BMS-2017-001130

PATIENT
  Age: 73 Year
  Sex: Male

DRUGS (1)
  1. COUMADINE [Suspect]
     Active Substance: WARFARIN SODIUM
     Indication: ATRIAL FIBRILLATION
     Dosage: 6 MG, QD
     Route: 048
     Dates: start: 20161120

REACTIONS (6)
  - Haemorrhagic anaemia [Recovered/Resolved]
  - Transfusion [Recovered/Resolved]
  - International normalised ratio increased [Recovering/Resolving]
  - Overdose [Unknown]
  - Rectal haemorrhage [Recovering/Resolving]
  - Radiation proctitis [Unknown]

NARRATIVE: CASE EVENT DATE: 20161201
